FAERS Safety Report 22227071 (Version 1)
Quarter: 2023Q2

REPORT INFORMATION
  Report Type: Other
  Country: US (occurrence: None)
  Receive Date: 20230419
  Receipt Date: 20230419
  Transmission Date: 20230722
  Serious: Yes (Other)
  Sender: FDA-Public Use
  Company Number: US-ROCHE-3331412

PATIENT
  Age: 57 Year
  Sex: Female
  Weight: 59.928 kg

DRUGS (14)
  1. XOLAIR [Suspect]
     Active Substance: OMALIZUMAB
     Indication: Respiratory disorder
     Route: 065
     Dates: start: 20141023, end: 20170518
  2. XOLAIR [Suspect]
     Active Substance: OMALIZUMAB
     Indication: Chronic spontaneous urticaria
  3. XOLAIR [Suspect]
     Active Substance: OMALIZUMAB
     Indication: Urticaria
  4. FENTANYL [Concomitant]
     Active Substance: FENTANYL
     Dosage: 75 MCG/HR PATCH 72 HRS
     Route: 062
  5. ESZOPICLONE [Concomitant]
     Active Substance: ESZOPICLONE
     Route: 048
  6. CYCLOBENZAPRINE HYDROCHLORIDE [Concomitant]
     Active Substance: CYCLOBENZAPRINE HYDROCHLORIDE
     Route: 048
  7. MUPIROCIN [Concomitant]
     Active Substance: MUPIROCIN
     Dosage: 2 % EXTERNAL
  8. HYDROMORPHONE HCL [Concomitant]
     Active Substance: HYDROMORPHONE HYDROCHLORIDE
     Route: 048
  9. GUANFACINE HYDROCHLORIDE [Concomitant]
     Active Substance: GUANFACINE HYDROCHLORIDE
     Route: 048
  10. CITALOPRAM HYDROBROMIDE [Concomitant]
     Active Substance: CITALOPRAM HYDROBROMIDE
     Route: 048
  11. CLOBETASOL PROPIONATE [Concomitant]
     Active Substance: CLOBETASOL PROPIONATE
     Dosage: 0.05 %
  12. DRONABINOL [Concomitant]
     Active Substance: DRONABINOL
  13. ZYRTEC [Concomitant]
     Active Substance: CETIRIZINE HYDROCHLORIDE
  14. BENADRYL [Concomitant]
     Active Substance: DIPHENHYDRAMINE HYDROCHLORIDE

REACTIONS (8)
  - Dry mouth [Unknown]
  - Anaphylactic reaction [Unknown]
  - Angioedema [Unknown]
  - Lip swelling [Unknown]
  - Urticaria [Unknown]
  - Off label use [Unknown]
  - Throat tightness [Unknown]
  - Speech disorder [Unknown]
